FAERS Safety Report 4492426-5 (Version None)
Quarter: 2004Q4

REPORT INFORMATION
  Report Type: 
  Country: None (occurrence: None)
  Receive Date: 20041103
  Receipt Date: 20041103
  Transmission Date: 20050328
  Serious: Yes (Hospitalization)
  Sender: FDA-Public Use
  Company Number: None

PATIENT
  Age: 34 Year
  Sex: Male

DRUGS (8)
  1. OMNIPAQUE 140 [Suspect]
     Indication: COMPUTERISED TOMOGRAM
     Dosage: 140ML
     Dates: start: 20040501, end: 20040501
  2. ROSIGLITAZONE MALEATE [Concomitant]
  3. GLIPIZIDE [Concomitant]
  4. RAMIPRIL [Concomitant]
  5. VALSARTAN [Concomitant]
  6. LEVOX [Concomitant]
  7. FUROSEMIDE [Concomitant]
  8. FERROUS SULFATE TAB [Concomitant]

REACTIONS (7)
  - CONTRAST MEDIA REACTION [None]
  - DEHYDRATION [None]
  - DRY MOUTH [None]
  - NAUSEA [None]
  - RENAL FAILURE ACUTE [None]
  - THIRST [None]
  - VOMITING [None]
